FAERS Safety Report 5856993-9 (Version None)
Quarter: 2008Q3

REPORT INFORMATION
  Report Type: 
  Country: None (occurrence: None)
  Receive Date: 20080825
  Receipt Date: 20080811
  Transmission Date: 20090109
  Serious: No
  Sender: FDA-Public Use
  Company Number: US-BOEHRINGER INGELHEIM GMBH, GERMANY-2008-BP-12643BP

PATIENT
  Sex: Female

DRUGS (1)
  1. MIRAPEX [Suspect]
     Indication: MUSCLE SPASMS
     Route: 048
     Dates: start: 20080809

REACTIONS (3)
  - ANOREXIA [None]
  - NAUSEA [None]
  - SOMNOLENCE [None]
